FAERS Safety Report 11705263 (Version 3)
Quarter: 2016Q2

REPORT INFORMATION
  Report Type: Spontaneous
  Country: US (occurrence: US)
  Receive Date: 20151106
  Receipt Date: 20160606
  Transmission Date: 20160815
  Serious: No
  Sender: FDA-Public Use
  Company Number: US-MDT-ADR-2015-02097

PATIENT
  Age: 65 Year
  Sex: Male

DRUGS (19)
  1. SAVELLA [Suspect]
     Active Substance: MILNACIPRAN HYDROCHLORIDE
  2. SINGULAIR [Suspect]
     Active Substance: MONTELUKAST SODIUM
  3. EFFEXOR XR [Suspect]
     Active Substance: VENLAFAXINE HYDROCHLORIDE
  4. NEURONTIN [Suspect]
     Active Substance: GABAPENTIN
  5. PREVACID [Suspect]
     Active Substance: LANSOPRAZOLE
  6. ZETIA [Suspect]
     Active Substance: EZETIMIBE
  7. COMPOUNDED BACLOFEN [Suspect]
     Active Substance: BACLOFEN
     Dosage: 499.9 MCG/DAY
     Route: 037
     Dates: end: 20150923
  8. MONTELUKAST SODIUM. [Suspect]
     Active Substance: MONTELUKAST SODIUM
  9. CLOBEX [Suspect]
     Active Substance: CLOBETASOL PROPIONATE
  10. BACLOFEN. [Suspect]
     Active Substance: BACLOFEN
     Route: 048
  11. LUNESTA [Suspect]
     Active Substance: ESZOPICLONE
  12. NALTREXONE [Suspect]
     Active Substance: NALTREXONE
  13. COMPOUNDED BACLOFEN [Suspect]
     Active Substance: BACLOFEN
     Dosage: 399.7 MCG/DAY
     Route: 037
     Dates: start: 20150924
  14. NITROFURANTOIN MONOHYD MACRO [Suspect]
     Active Substance: NITROFURANTOIN\NITROFURANTOIN MONOHYDRATE
  15. LYRICA [Suspect]
     Active Substance: PREGABALIN
  16. COMPOUNDED BACLOFEN [Suspect]
     Active Substance: BACLOFEN
     Dosage: 349.7 MCG/DAY
     Route: 037
     Dates: start: 20150923, end: 20150924
  17. LISINOPRIL. [Suspect]
     Active Substance: LISINOPRIL
  18. PROVIGIL [Suspect]
     Active Substance: MODAFINIL
  19. LESCOL [Suspect]
     Active Substance: FLUVASTATIN SODIUM

REACTIONS (3)
  - Dyskinesia [Recovered/Resolved]
  - Device infusion issue [None]
  - Muscle spasms [Recovered/Resolved]
